FAERS Safety Report 26046999 (Version 1)
Quarter: 2025Q4

REPORT INFORMATION
  Report Type: Spontaneous
  Country: US (occurrence: None)
  Receive Date: 20251114
  Receipt Date: 20251114
  Transmission Date: 20260117
  Serious: No
  Sender: FDA-CTU
  Company Number: None

PATIENT
  Age: 41 Year
  Sex: Female
  Weight: 79.2 kg

DRUGS (15)
  1. AUVELITY [Suspect]
     Active Substance: BUPROPION HYDROCHLORIDE\DEXTROMETHORPHAN HYDROBROMIDE
     Indication: Major depression
  2. BUPROPION [Concomitant]
     Active Substance: BUPROPION
  3. MOUNJARO [Concomitant]
     Active Substance: TIRZEPATIDE
  4. METFORMIN [Concomitant]
     Active Substance: METFORMIN HYDROCHLORIDE
  5. LANTUS [Concomitant]
     Active Substance: INSULIN GLARGINE
  6. ZYRTEC [Concomitant]
     Active Substance: CETIRIZINE HYDROCHLORIDE
  7. GABAPENTIN [Concomitant]
     Active Substance: GABAPENTIN
  8. atorvastat [Concomitant]
  9. COSENTYX [Concomitant]
     Active Substance: SECUKINUMAB
  10. METOPROLOL [Concomitant]
     Active Substance: METOPROLOL
  11. ABILIFY [Concomitant]
     Active Substance: ARIPIPRAZOLE
  12. CYMBALTA [Concomitant]
     Active Substance: DULOXETINE HYDROCHLORIDE
  13. ZYRTEC [Concomitant]
     Active Substance: CETIRIZINE HYDROCHLORIDE
  14. TYLENOL [Concomitant]
     Active Substance: ACETAMINOPHEN
  15. motrin PRN [Concomitant]

REACTIONS (7)
  - Feeling abnormal [None]
  - Indifference [None]
  - Dizziness [None]
  - Dissociation [None]
  - Hypoacusis [None]
  - Arthropathy [None]
  - Brain fog [None]

NARRATIVE: CASE EVENT DATE: 20251103
